FAERS Safety Report 8955144 (Version 2)
Quarter: 2013Q1

REPORT INFORMATION
  Report Type: Report from Study
  Country: IT (occurrence: IT)
  Receive Date: 20121207
  Receipt Date: 20130228
  Transmission Date: 20140127
  Serious: Yes (Life-Threatening, Hospitalization)
  Sender: FDA-Public Use
  Company Number: IT-ELI_LILLY_AND_COMPANY-IT201212000715

PATIENT
  Sex: 0

DRUGS (7)
  1. PEMETREXED [Suspect]
     Indication: NON-SMALL CELL LUNG CANCER
     Dosage: 500 MG/M2, DAY 1 EVERY 21 DAYS
     Route: 042
     Dates: start: 20121121, end: 20121121
  2. CISPLATIN [Suspect]
     Indication: NON-SMALL CELL LUNG CANCER
     Dosage: 60 MG/M2, DAY 1 EVERY 21 DAYS
     Route: 042
     Dates: start: 20121121, end: 20121121
  3. FOLIC ACID [Concomitant]
     Dosage: 400 UG, QD
  4. VITAMIN B12 [Concomitant]
  5. APREPITANT [Concomitant]
     Dosage: 3 DAYS
  6. OMEPRAZOLE [Concomitant]
     Dosage: 20 MG, QD
  7. DEXAMETHASONE [Concomitant]
     Dosage: 32 GTT, UNK

REACTIONS (2)
  - Febrile neutropenia [Not Recovered/Not Resolved]
  - Gastrointestinal toxicity [Not Recovered/Not Resolved]
